FAERS Safety Report 4455478-4 (Version None)
Quarter: 2004Q3

REPORT INFORMATION
  Report Type: 
  Country: None (occurrence: None)
  Receive Date: 20040917
  Receipt Date: 20040901
  Transmission Date: 20050211
  Serious: Yes (Death)
  Sender: FDA-Public Use
  Company Number: EWC040940470

PATIENT
  Age: 59 Year
  Sex: Male
  Weight: 98 kg

DRUGS (4)
  1. OLANZAPINE [Suspect]
     Indication: SCHIZOPHRENIA
     Dosage: 20 MG DAY
     Dates: start: 20040723, end: 20040725
  2. CARDURA [Concomitant]
  3. CLOPIXOL DEPOT (ZUCLOPENTHIXOL DECANOATE) [Concomitant]
  4. TISERCIN (LEVOMEPROMAZINE) [Concomitant]

REACTIONS (6)
  - ARTERIAL DISORDER [None]
  - ATHEROSCLEROSIS [None]
  - HYPERTONIA [None]
  - ISCHAEMIC CARDIOMYOPATHY [None]
  - PULMONARY EMBOLISM [None]
  - SUDDEN DEATH [None]
